FAERS Safety Report 7346791-1 (Version None)
Quarter: 2011Q1

REPORT INFORMATION
  Report Type: 
  Country: None (occurrence: None)
  Receive Date: 20110311
  Receipt Date: 20110301
  Transmission Date: 20110831
  Serious: Yes (Other)
  Sender: FDA-Public Use
  Company Number: NO-JNJFOC-20110301428

PATIENT
  Age: 40 Year

DRUGS (4)
  1. REMICADE [Suspect]
     Indication: CROHN'S DISEASE
     Route: 042
  2. REMICADE [Suspect]
     Dosage: 3RD INFUSION
     Route: 042
  3. VENOFER [Suspect]
     Indication: CROHN'S DISEASE
  4. VENOFER [Suspect]

REACTIONS (3)
  - HYPOTENSION [None]
  - URTICARIA [None]
  - SYNCOPE [None]
